FAERS Safety Report 7591041-4 (Version None)
Quarter: 2011Q3

REPORT INFORMATION
  Report Type: 
  Country: None (occurrence: None)
  Receive Date: 20110705
  Receipt Date: 20110630
  Transmission Date: 20111222
  Serious: Yes (Hospitalization, Disabling, Other)
  Sender: FDA-Public Use
  Company Number: US-PFIZER INC-2011088474

PATIENT
  Sex: Female

DRUGS (13)
  1. PREDNISONE [Concomitant]
     Indication: ASTHMA
     Dosage: UNK
     Dates: start: 20030101, end: 20090101
  2. PROMETHAZINE [Concomitant]
     Indication: NAUSEA
     Dosage: UNK
     Dates: start: 20060101, end: 20090101
  3. ALBUTEROL SULFATE AUTOHALER [Concomitant]
     Indication: ASTHMA
     Dosage: UNK
     Dates: start: 20030101, end: 20090101
  4. DARVOCET [Concomitant]
     Indication: PAIN
     Dosage: UNK
     Dates: start: 20020101, end: 20080101
  5. LASIX [Concomitant]
     Indication: BLOOD PRESSURE
     Dosage: UNK
     Dates: start: 20060101, end: 20090101
  6. KLONOPIN [Concomitant]
     Indication: ANXIETY
     Dosage: UNK
     Dates: start: 20020101
  7. ADVAIR DISKUS 100/50 [Concomitant]
     Indication: ASTHMA
     Dosage: UNK
     Dates: start: 20030101, end: 20090101
  8. HYDROCODONE [Concomitant]
     Dosage: UNK
     Dates: start: 20020101, end: 20080101
  9. CHANTIX [Suspect]
     Indication: SMOKING CESSATION THERAPY
     Dosage: 0.5/1MG
     Dates: start: 20070501, end: 20070501
  10. TRAZODONE [Concomitant]
     Indication: SLEEP DISORDER
     Dosage: UNK
     Dates: start: 20060101, end: 20090101
  11. RISPERIDONE [Concomitant]
     Indication: DEPRESSION
     Dosage: UNK
     Dates: start: 20020101
  12. CYMBALTA [Concomitant]
     Indication: DEPRESSION
     Dosage: UNK
     Dates: start: 20020101
  13. AMBIEN [Concomitant]
     Indication: SLEEP DISORDER
     Dosage: UNK
     Dates: start: 20060101, end: 20090101

REACTIONS (11)
  - PARANOIA [None]
  - PANIC ATTACK [None]
  - NERVOUS SYSTEM DISORDER [None]
  - PSYCHOTIC DISORDER [None]
  - CONVULSION [None]
  - CONFUSIONAL STATE [None]
  - ANXIETY [None]
  - SUICIDAL BEHAVIOUR [None]
  - DEPRESSION [None]
  - AMNESIA [None]
  - IRRITABILITY [None]
